FAERS Safety Report 22274489 (Version 2)
Quarter: 2023Q2

REPORT INFORMATION
  Report Type: Report from Study
  Country: US (occurrence: US)
  Receive Date: 20230502
  Receipt Date: 20230505
  Transmission Date: 20230722
  Serious: Yes (Other)
  Sender: FDA-Public Use
  Company Number: US-ABBVIE-4747862

PATIENT
  Age: 58 Year
  Sex: Male

DRUGS (1)
  1. HUMIRA [Suspect]
     Active Substance: ADALIMUMAB
     Indication: Rheumatoid arthritis
     Dosage: CF FORM STRENGTH: 40 MG
     Route: 058

REACTIONS (6)
  - Loss of consciousness [Unknown]
  - Fall [Unknown]
  - Injection site haemorrhage [Unknown]
  - Unevaluable event [Not Recovered/Not Resolved]
  - Fracture [Unknown]
  - Road traffic accident [Unknown]

NARRATIVE: CASE EVENT DATE: 20230406
